FAERS Safety Report 24033831 (Version 1)
Quarter: 2024Q3

REPORT INFORMATION
  Report Type: Spontaneous
  Country: FR (occurrence: FR)
  Receive Date: 20240701
  Receipt Date: 20240701
  Transmission Date: 20241016
  Serious: Yes (Life-Threatening, Hospitalization, Other)
  Sender: BRISTOL MYERS SQUIBB
  Company Number: FR-BRISTOL-MYERS SQUIBB COMPANY-2024-102842

PATIENT
  Age: 66 Year
  Sex: Male

DRUGS (2)
  1. NIVOLUMAB [Suspect]
     Active Substance: NIVOLUMAB
     Indication: Metastatic malignant melanoma
  2. IPILIMUMAB [Suspect]
     Active Substance: IPILIMUMAB
     Indication: Metastatic malignant melanoma

REACTIONS (4)
  - Meningoradiculitis [Unknown]
  - Vocal cord paralysis [Unknown]
  - Respiratory failure [Unknown]
  - Off label use [Unknown]
